FAERS Safety Report 21365053 (Version 2)
Quarter: 2022Q3

REPORT INFORMATION
  Report Type: Report from Study
  Country: US (occurrence: US)
  Receive Date: 20220922
  Receipt Date: 20220929
  Transmission Date: 20221027
  Serious: Yes (Other)
  Sender: FDA-Public Use
  Company Number: US-ABBVIE-4128356

PATIENT
  Sex: Female

DRUGS (1)
  1. HUMIRA [Suspect]
     Active Substance: ADALIMUMAB
     Indication: Rheumatoid arthritis
     Route: 058

REACTIONS (3)
  - Central nervous system lesion [Not Recovered/Not Resolved]
  - Sinusitis [Recovering/Resolving]
  - CSF protein abnormal [Not Recovered/Not Resolved]

NARRATIVE: CASE EVENT DATE: 20220101
